FAERS Safety Report 6380275-2 (Version None)
Quarter: 2009Q3

REPORT INFORMATION
  Report Type: 
  Country: None (occurrence: None)
  Receive Date: 20090929
  Receipt Date: 20090904
  Transmission Date: 20100115
  Serious: No
  Sender: FDA-Public Use
  Company Number: BR-ROCHE-655898

PATIENT
  Sex: Female
  Weight: 80 kg

DRUGS (1)
  1. TAMIFLU [Suspect]
     Route: 048
     Dates: start: 20090828, end: 20090902

REACTIONS (2)
  - NO ADVERSE EVENT [None]
  - PREGNANCY [None]
